FAERS Safety Report 6752206-4 (Version None)
Quarter: 2010Q2

REPORT INFORMATION
  Report Type: 
  Country: None (occurrence: None)
  Receive Date: 20100602
  Receipt Date: 20100527
  Transmission Date: 20101027
  Serious: Yes (Other)
  Sender: FDA-Public Use
  Company Number: SG-B.I. PHARMACEUTICALS,INC./RIDGEFIELD-2010-CS-00505CS

PATIENT
  Age: 57 Year
  Sex: Female

DRUGS (1)
  1. MICARDIS [Suspect]
     Dosage: 80 MG
     Route: 048

REACTIONS (1)
  - HYPERTENSIVE CRISIS [None]
